FAERS Safety Report 4820908-2 (Version None)
Quarter: 2005Q4

REPORT INFORMATION
  Report Type: 
  Country: None (occurrence: None)
  Receive Date: 20051104
  Receipt Date: 20050804
  Transmission Date: 20060501
  Serious: Yes (Hospitalization, Other)
  Sender: FDA-Public Use
  Company Number: 200512360EU

PATIENT
  Age: 69 Year
  Sex: Male
  Weight: 60 kg

DRUGS (9)
  1. ENOXAPARIN SODIUM [Suspect]
     Indication: MYOCARDIAL ISCHAEMIA
     Route: 058
     Dates: start: 20050518, end: 20050521
  2. REOPRO [Suspect]
     Indication: MYOCARDIAL ISCHAEMIA
     Dosage: DOSE: DOSE UNKNOWN
     Route: 041
     Dates: start: 20050520, end: 20050520
  3. CLOPIDOGREL BISULFATE [Suspect]
     Indication: MYOCARDIAL ISCHAEMIA
     Route: 048
     Dates: start: 20050518
  4. ASPIRIN [Concomitant]
  5. MOLSIDOMIN [Concomitant]
     Dosage: DOSE: UNK
     Route: 048
     Dates: start: 20050519
  6. NITROGLYCERIN [Concomitant]
     Dosage: DOSE: UNK
     Dates: start: 20050518
  7. METOPROLOL [Concomitant]
  8. SIMVASTATIN [Concomitant]
  9. MAGNESIUM [Concomitant]
     Dosage: DOSE: UNK

REACTIONS (2)
  - INAPPROPRIATE ANTIDIURETIC HORMONE SECRETION [None]
  - THROMBOCYTOPENIA [None]
